FAERS Safety Report 9213631 (Version 2)
Quarter: 2013Q4

REPORT INFORMATION
  Report Type: Spontaneous
  Country: US (occurrence: US)
  Receive Date: 20130405
  Receipt Date: 20131209
  Transmission Date: 20140711
  Serious: Yes (Hospitalization, Other)
  Sender: FDA-Public Use
  Company Number: US-BAYER-2013-041111

PATIENT
  Age: 26 Year
  Sex: Female

DRUGS (5)
  1. YASMIN [Suspect]
     Dosage: UNK
     Dates: start: 200504
  2. OCELLA [Suspect]
     Dosage: UNK
     Dates: start: 200504
  3. YAZ [Suspect]
     Dosage: UNK
     Dates: start: 200504
  4. PROTONIX [Concomitant]
     Dosage: 40 MG, UNK
  5. LEXAPRO [Concomitant]
     Dosage: 10 MG, UNK

REACTIONS (5)
  - Gallbladder injury [None]
  - Pain [None]
  - Injury [None]
  - Pain [None]
  - Cholecystitis acute [None]
